FAERS Safety Report 6041937-X (Version None)
Quarter: 2009Q1

REPORT INFORMATION
  Report Type: 
  Country: None (occurrence: None)
  Receive Date: 20090116
  Receipt Date: 20090106
  Transmission Date: 20090719
  Serious: Yes (Death, Other)
  Sender: FDA-Public Use
  Company Number: JP-ROCHE-420257

PATIENT
  Sex: Male
  Weight: 65 kg

DRUGS (32)
  1. CELLCEPT [Suspect]
     Indication: PROPHYLAXIS AGAINST GRAFT VERSUS HOST DISEASE
     Route: 048
     Dates: start: 20040928, end: 20050106
  2. CELLCEPT [Suspect]
     Route: 048
     Dates: start: 20050119, end: 20050129
  3. CELLCEPT [Suspect]
     Route: 048
     Dates: start: 20050204, end: 20050205
  4. SOLU-MEDROL [Suspect]
     Indication: PROPHYLAXIS
     Route: 041
     Dates: start: 20040921, end: 20040921
  5. IMMUNOGLOBULIN ANTI-HUMAN-LYMPHOCYTIC [Suspect]
     Indication: PROPHYLAXIS AGAINST GRAFT VERSUS HOST DISEASE
     Dosage: DRUG AS : ZETBULIN
     Route: 041
     Dates: start: 20040917, end: 20040918
  6. SANDIMMUNE [Suspect]
     Indication: PROPHYLAXIS AGAINST GRAFT VERSUS HOST DISEASE
     Route: 041
     Dates: start: 20040920, end: 20041007
  7. NEORAL [Suspect]
     Indication: PROPHYLAXIS AGAINST GRAFT VERSUS HOST DISEASE
     Route: 048
     Dates: start: 20041007, end: 20041021
  8. NEORAL [Suspect]
     Route: 048
     Dates: start: 20041022, end: 20041118
  9. PREDONINE [Suspect]
     Indication: PROPHYLAXIS AGAINST GRAFT VERSUS HOST DISEASE
     Route: 041
     Dates: start: 20041028, end: 20041028
  10. PREDONINE [Suspect]
     Route: 041
     Dates: start: 20041029, end: 20041030
  11. PREDONINE [Suspect]
     Route: 041
     Dates: start: 20041102, end: 20041106
  12. PREDONINE [Suspect]
     Route: 041
     Dates: start: 20041107, end: 20041109
  13. PREDONINE [Suspect]
     Route: 041
     Dates: start: 20041110, end: 20041112
  14. PREDONINE [Suspect]
     Route: 041
     Dates: start: 20041113, end: 20041115
  15. PREDONINE [Suspect]
     Route: 041
     Dates: start: 20041116, end: 20041202
  16. PREDNISOLONE [Suspect]
     Indication: PROPHYLAXIS AGAINST GRAFT VERSUS HOST DISEASE
     Route: 048
     Dates: start: 20041031, end: 20041102
  17. PREDNISOLONE [Suspect]
     Route: 048
     Dates: start: 20041203, end: 20041209
  18. PREDNISOLONE [Suspect]
     Route: 048
     Dates: start: 20041210, end: 20041215
  19. PREDNISOLONE [Suspect]
     Route: 048
     Dates: start: 20041216, end: 20041227
  20. PREDNISOLONE [Suspect]
     Route: 048
     Dates: start: 20041228, end: 20050105
  21. PREDNISOLONE [Suspect]
     Route: 048
     Dates: start: 20050106, end: 20050120
  22. PREDNISOLONE [Suspect]
     Route: 048
     Dates: start: 20050121, end: 20050123
  23. PREDNISOLONE [Suspect]
     Route: 048
     Dates: start: 20050124
  24. CYCLOSPORINE [Concomitant]
     Indication: PROPHYLAXIS AGAINST GRAFT VERSUS HOST DISEASE
     Route: 065
  25. BUSULPHAN [Concomitant]
     Indication: CHEMOTHERAPY
  26. METHOTREXATE [Concomitant]
     Indication: PROPHYLAXIS AGAINST GRAFT VERSUS HOST DISEASE
     Dosage: SHORT TERM TREATMENT
  27. FLUDARA [Concomitant]
     Indication: CHEMOTHERAPY
     Dosage: ROUTE: INTRAVENOUS (NOT OTHERWISE SPECIFIED)
     Route: 042
     Dates: start: 20040913, end: 20040918
  28. ATGAM [Concomitant]
     Indication: CHEMOTHERAPY
  29. VALTREX [Concomitant]
     Route: 048
     Dates: start: 20041008, end: 20041021
  30. ZOVIRAX [Concomitant]
     Dosage: FROM: ORAL (NOT OTHERWISE SPECIFIED)
     Route: 048
     Dates: start: 20041022, end: 20041104
  31. ZOVIRAX [Concomitant]
     Dosage: FROM: ORAL (NOT OTHERWISE SPECIFIED)
     Route: 048
     Dates: start: 20041206, end: 20041223
  32. REBETOL [Concomitant]
     Route: 048
     Dates: start: 20041105, end: 20041111

REACTIONS (6)
  - CYTOMEGALOVIRUS INFECTION [None]
  - CYTOMEGALOVIRUS VIRAEMIA [None]
  - DISSEMINATED INTRAVASCULAR COAGULATION [None]
  - MULTI-ORGAN FAILURE [None]
  - SEPSIS [None]
  - VIRAL HAEMORRHAGIC CYSTITIS [None]
